FAERS Safety Report 5941265-4 (Version None)
Quarter: 2008Q4

REPORT INFORMATION
  Report Type: 
  Country: None (occurrence: None)
  Receive Date: 20081103
  Receipt Date: 20081103
  Transmission Date: 20090506
  Serious: Yes (Life-Threatening, Hospitalization)
  Sender: FDA-Public Use
  Company Number: None

PATIENT
  Age: 17 Year
  Weight: 83.0083 kg

DRUGS (1)
  1. ALEVE [Suspect]
     Indication: MYALGIA
     Dosage: THREE PILLS ONCE PO
     Route: 048
     Dates: start: 20081009, end: 20081009

REACTIONS (1)
  - LOWER GASTROINTESTINAL HAEMORRHAGE [None]
